FAERS Safety Report 18109151 (Version 1)
Quarter: 2020Q3

REPORT INFORMATION
  Report Type: Spontaneous
  Country: US (occurrence: US)
  Receive Date: 20200804
  Receipt Date: 20200804
  Transmission Date: 20201103
  Serious: Yes (Hospitalization)
  Sender: FDA-Public Use
  Company Number: None

PATIENT
  Age: 53 Year
  Sex: Female

DRUGS (4)
  1. SIMVASTATIN 5MG [Concomitant]
  2. DALFAMPRIDINE. [Suspect]
     Active Substance: DALFAMPRIDINE
     Indication: MULTIPLE SCLEROSIS
     Route: 048
     Dates: start: 20181009
  3. TIZANIDINE 4MG [Concomitant]
     Active Substance: TIZANIDINE
  4. GABAPENTIN 100MG [Concomitant]
     Active Substance: GABAPENTIN

REACTIONS (2)
  - Tibia fracture [None]
  - Fall [None]
